FAERS Safety Report 5463209-4 (Version None)
Quarter: 2007Q3

REPORT INFORMATION
  Report Type: 
  Country: None (occurrence: None)
  Receive Date: 20070920
  Receipt Date: 20070919
  Transmission Date: 20080115
  Serious: Yes (Hospitalization, Other)
  Sender: FDA-Public Use
  Company Number: B0473870A

PATIENT
  Age: 9 Year
  Sex: Female

DRUGS (6)
  1. AMOXICILLIN [Suspect]
     Indication: TONSILLITIS
     Dosage: 750MG PER DAY
     Route: 048
     Dates: start: 20070515, end: 20070520
  2. ASVERIN [Concomitant]
     Indication: COUGH
     Dosage: 50MG PER DAY
     Route: 048
     Dates: start: 20070515, end: 20070520
  3. ENTERONON-R [Concomitant]
     Dosage: 3G PER DAY
     Route: 048
     Dates: start: 20070515, end: 20070520
  4. MUCODYNE [Concomitant]
     Dosage: 650MG PER DAY
     Route: 048
     Dates: start: 20070515, end: 20070520
  5. ANHIBA [Concomitant]
     Dosage: 200MG TWICE PER DAY
     Dates: start: 20070513, end: 20070513
  6. VICCILLIN [Concomitant]
     Indication: STREPTOCOCCAL INFECTION
     Dosage: .5G THREE TIMES PER DAY
     Route: 042
     Dates: start: 20070513, end: 20070515

REACTIONS (5)
  - ERYTHEMA MULTIFORME [None]
  - PYREXIA [None]
  - RASH ERYTHEMATOUS [None]
  - RASH PAPULAR [None]
  - STEVENS-JOHNSON SYNDROME [None]
